FAERS Safety Report 22284609 (Version 1)
Quarter: 2023Q2

REPORT INFORMATION
  Report Type: Spontaneous
  Country: US (occurrence: US)
  Receive Date: 20230504
  Receipt Date: 20230504
  Transmission Date: 20230721
  Serious: No
  Sender: FDA-Public Use
  Company Number: US-TARO PHARMACEUTICALS USA INC.-2022TAR01124

PATIENT

DRUGS (1)
  1. METRONIDAZOLE [Suspect]
     Active Substance: METRONIDAZOLE
     Indication: Rosacea
     Dosage: UNK, OD
     Route: 061
     Dates: start: 202208

REACTIONS (4)
  - Application site burn [Unknown]
  - Rash macular [Unknown]
  - Myalgia [Unknown]
  - Rosacea [Unknown]
